FAERS Safety Report 25025340 (Version 1)
Quarter: 2025Q1

REPORT INFORMATION
  Report Type: Other
  Country: SK (occurrence: SK)
  Receive Date: 20250228
  Receipt Date: 20250228
  Transmission Date: 20250408
  Serious: Yes (Death, Life-Threatening, Hospitalization, Other)
  Sender: VITRUVIAS THERAPEUTICS
  Company Number: SK-Vitruvias Therapeutics-2172004

PATIENT
  Age: 53 Year
  Sex: Male
  Weight: 99 kg

DRUGS (1)
  1. PROPAFENONE HYDROCHLORIDE [Suspect]
     Active Substance: PROPAFENONE HYDROCHLORIDE

REACTIONS (1)
  - Completed suicide [Fatal]
